FAERS Safety Report 9195252 (Version 1)
Quarter: 2013Q1

REPORT INFORMATION
  Report Type: Spontaneous
  Country: US (occurrence: US)
  Receive Date: 20130328
  Receipt Date: 20130328
  Transmission Date: 20140127
  Serious: No
  Sender: FDA-Public Use
  Company Number: US-ALLERGAN-1301531US

PATIENT
  Age: 60 Year
  Sex: Female

DRUGS (2)
  1. LATISSE 0.03% [Suspect]
     Indication: GROWTH OF EYELASHES
     Dosage: 2 GTT, QHS
     Route: 061
  2. ENTOCORT [Concomitant]
     Indication: COLITIS ULCERATIVE
     Dosage: UNK UNK, PRN
     Route: 048
     Dates: start: 2008

REACTIONS (1)
  - Blepharal pigmentation [Unknown]
